FAERS Safety Report 10671014 (Version 6)
Quarter: 2015Q1

REPORT INFORMATION
  Report Type: Report from Study
  Country: US (occurrence: US)
  Receive Date: 20141223
  Receipt Date: 20150313
  Transmission Date: 20150720
  Serious: Yes (Hospitalization)
  Sender: FDA-Public Use
  Company Number: US-EISAI MEDICAL RESEARCH-EC-2014-002099

PATIENT
  Age: 70 Year
  Sex: Female
  Weight: 112.5 kg

DRUGS (19)
  1. COZAAR [Concomitant]
     Active Substance: LOSARTAN POTASSIUM
  2. FISH OIL [Concomitant]
     Active Substance: FISH OIL
  3. MUTLIVITAMIN [Concomitant]
  4. LORCASERIN [Suspect]
     Active Substance: LORCASERIN HYDROCHLORIDE
     Indication: WEIGHT DECREASED
     Route: 048
     Dates: start: 20140908
  5. ONDANSETRON [Concomitant]
     Active Substance: ONDANSETRON
  6. SODIUM CHLORIDE. [Concomitant]
     Active Substance: SODIUM CHLORIDE
  7. VITAMIN D3 [Concomitant]
     Active Substance: CHOLECALCIFEROL
  8. GLUCOSAMINE [Concomitant]
     Active Substance: GLUCOSAMINE
  9. MYRBETRIQ [Concomitant]
     Active Substance: MIRABEGRON
  10. TRAMADOL [Concomitant]
     Active Substance: TRAMADOL
  11. HYDROCHLOROTHIAZIDE. [Concomitant]
     Active Substance: HYDROCHLOROTHIAZIDE
  12. HYDROMORPHONE HCI [Concomitant]
  13. LOPAMIDOL [Concomitant]
  14. BIOTIN [Concomitant]
     Active Substance: BIOTIN
  15. METFORMIN [Concomitant]
     Active Substance: METFORMIN HYDROCHLORIDE
  16. ASPIRIN. [Concomitant]
     Active Substance: ASPIRIN
  17. COENZYME Q10 [Concomitant]
     Active Substance: UBIDECARENONE
  18. CITRACAL PLUS VITAMIN D [Concomitant]
  19. FERGON [Concomitant]
     Active Substance: FERROUS GLUCONATE

REACTIONS (3)
  - Splenic rupture [Recovered/Resolved]
  - Pleural effusion [Recovered/Resolved]
  - Abdominal pain upper [Recovered/Resolved]

NARRATIVE: CASE EVENT DATE: 20141129
